FAERS Safety Report 11005035 (Version 1)
Quarter: 2015Q2

REPORT INFORMATION
  Report Type: Spontaneous
  Country: US (occurrence: US)
  Receive Date: 20150409
  Receipt Date: 20150409
  Transmission Date: 20150821
  Serious: No
  Sender: FDA-Public Use
  Company Number: US-PFIZER INC-2015121252

PATIENT
  Age: 69 Year
  Sex: Female

DRUGS (4)
  1. MOTRIN [Suspect]
     Active Substance: IBUPROFEN
     Dosage: UNK
  2. FLAGYL [Suspect]
     Active Substance: METRONIDAZOLE\METRONIDAZOLE HYDROCHLORIDE
     Dosage: UNK
  3. ASPARTAME [Suspect]
     Active Substance: ASPARTAME
     Dosage: UNK
  4. IODINE [Suspect]
     Active Substance: IODINE
     Dosage: UNK

REACTIONS (1)
  - Drug hypersensitivity [Unknown]
